FAERS Safety Report 23581363 (Version 2)
Quarter: 2024Q1

REPORT INFORMATION
  Report Type: Report from Study
  Country: US (occurrence: US)
  Receive Date: 20240229
  Receipt Date: 20240327
  Transmission Date: 20240410
  Serious: Yes (Other)
  Sender: FDA-Public Use
  Company Number: US-BAYER-2024A006861

PATIENT
  Age: 63 Year
  Sex: Male

DRUGS (3)
  1. STIVARGA [Suspect]
     Active Substance: REGORAFENIB
     Indication: Colon cancer
     Dosage: 120 MG, QD (FOR 21 DAYS ON , 7 DAYS OFF)
     Route: 048
     Dates: start: 20231201
  2. STIVARGA [Suspect]
     Active Substance: REGORAFENIB
     Indication: Colon cancer
     Dosage: 80 MG, QD (FOR 21 DAYS ON , 7 DAYS OFF)
     Route: 048
     Dates: start: 202401
  3. STIVARGA [Suspect]
     Active Substance: REGORAFENIB
     Indication: Colon cancer
     Dosage: 120 MG, QD (FOR 21 DAYS ON , 7 DAYS OFF)
     Route: 048
     Dates: start: 20240315

REACTIONS (5)
  - Hepatic mass [Not Recovered/Not Resolved]
  - Cardiac disorder [Not Recovered/Not Resolved]
  - Off label use [None]
  - Diarrhoea [Recovering/Resolving]
  - Blister [Not Recovered/Not Resolved]
